FAERS Safety Report 15233421 (Version 1)
Quarter: 2018Q4

REPORT INFORMATION
  Report Type: Spontaneous
  Country: US (occurrence: US)
  Receive Date: 20180802
  Receipt Date: 20180802
  Transmission Date: 20190204
  Serious: No
  Sender: FDA-Public Use
  Company Number: US-BAUSCH-BL-2018-016414

PATIENT
  Age: 50 Year
  Sex: Male
  Weight: 77.18 kg

DRUGS (2)
  1. ZYLET [Suspect]
     Active Substance: LOTEPREDNOL ETABONATE\TOBRAMYCIN
     Dosage: ONE DROP IN EACH EYE DAILY
     Route: 065
     Dates: start: 2016
  2. ZYLET [Suspect]
     Active Substance: LOTEPREDNOL ETABONATE\TOBRAMYCIN
     Indication: BLEPHARITIS
     Route: 065

REACTIONS (2)
  - Product deposit [Unknown]
  - Drug ineffective [Recovered/Resolved]
